FAERS Safety Report 25161904 (Version 4)
Quarter: 2025Q3

REPORT INFORMATION
  Report Type: Spontaneous
  Country: US (occurrence: US)
  Receive Date: 20250404
  Receipt Date: 20250820
  Transmission Date: 20251021
  Serious: Yes (Death, Hospitalization, Other)
  Sender: PFIZER
  Company Number: US-BRISTOL-MYERS SQUIBB COMPANY-2025-048716

PATIENT
  Age: 56 Year
  Sex: Male
  Weight: 82 kg

DRUGS (25)
  1. ELIQUIS [Suspect]
     Active Substance: APIXABAN
     Indication: Thrombosis
     Route: 048
     Dates: start: 20240314
  2. CARBOPLATIN [Suspect]
     Active Substance: CARBOPLATIN
     Indication: Adenocarcinoma
     Dosage: 10 MG/ML/MIN, EVERY 3 WEEKS, (TOTAL ADMINISTERED DOSE WAS 30 MG)
     Route: 042
     Dates: start: 20240328, end: 20240328
  3. CARBOPLATIN [Suspect]
     Active Substance: CARBOPLATIN
     Dosage: 10 MG/ML/MIN, EVERY 3 WEEKS, (TOTAL ADMINISTERED DOSE WAS 446 MG)
     Route: 042
     Dates: start: 20240417, end: 20240417
  4. CARBOPLATIN [Suspect]
     Active Substance: CARBOPLATIN
     Route: 042
     Dates: start: 20240910, end: 20240910
  5. CARBOPLATIN [Suspect]
     Active Substance: CARBOPLATIN
     Route: 042
     Dates: start: 20241002, end: 20241002
  6. CABAZITAXEL [Suspect]
     Active Substance: CABAZITAXEL
     Indication: Adenocarcinoma
     Dosage: TOTAL DOSE: 30 MG
     Route: 042
     Dates: start: 20240328, end: 20240328
  7. CABAZITAXEL [Suspect]
     Active Substance: CABAZITAXEL
     Dosage: TOTAL ADMINISTERED DOSE WAS 39 MG
     Route: 042
     Dates: start: 20240417, end: 20240417
  8. CABAZITAXEL [Suspect]
     Active Substance: CABAZITAXEL
     Dosage: TOTAL DOSE: 30 MG
     Route: 042
     Dates: start: 20240910, end: 20240910
  9. CABAZITAXEL [Suspect]
     Active Substance: CABAZITAXEL
     Dosage: TOTAL DOSE: 30 MG
     Route: 042
     Dates: start: 20241002, end: 20241002
  10. VITAMINS [Concomitant]
     Active Substance: VITAMINS
     Dates: start: 20231001
  11. ONDANSETRON [Concomitant]
     Active Substance: ONDANSETRON
     Dates: start: 20230306
  12. OXYCODONE [Concomitant]
     Active Substance: OXYCODONE
     Dates: start: 20230505
  13. PROCHLORPERAZINE [Concomitant]
     Active Substance: PROCHLORPERAZINE
  14. IBUPROFEN [Concomitant]
     Active Substance: IBUPROFEN
     Dates: start: 20230505
  15. OMEPRAZOLE [Concomitant]
     Active Substance: OMEPRAZOLE
     Dates: start: 20240408
  16. VITAMIN B COMPLEX [Concomitant]
     Active Substance: CYANOCOBALAMIN\DEXPANTHENOL\NIACINAMIDE\PYRIDOXINE HYDROCHLORIDE\RIBOFLAVIN 5^-PHOSPHATE SODIUM\THIA
     Dates: start: 20200321
  17. CHOLECALCIFEROL [Concomitant]
     Active Substance: CHOLECALCIFEROL
     Dates: start: 20201217
  18. DOCUSATE [Concomitant]
     Active Substance: DOCUSATE
  19. GABAPENTIN [Concomitant]
     Active Substance: GABAPENTIN
     Dates: start: 20221106
  20. HYDROCORTISONE [Concomitant]
     Active Substance: HYDROCORTISONE
  21. LACTULOSE [Concomitant]
     Active Substance: LACTULOSE
     Indication: Constipation
  22. MAGNESIUM OXIDE [Concomitant]
     Active Substance: MAGNESIUM OXIDE
  23. LUPRON [Concomitant]
     Active Substance: LEUPROLIDE ACETATE
     Indication: Adenocarcinoma
     Dates: start: 20190104
  24. DAROLUTAMIDE [Concomitant]
     Active Substance: DAROLUTAMIDE
     Indication: Adenocarcinoma
     Dates: start: 20221115
  25. DIPHENHYDRAMINE HYDROCHLORIDE [Concomitant]
     Active Substance: DIPHENHYDRAMINE HYDROCHLORIDE
     Dates: start: 20240417, end: 20240417

REACTIONS (17)
  - Tumour lysis syndrome [Fatal]
  - Sepsis [Recovered/Resolved]
  - Systemic inflammatory response syndrome [Recovered/Resolved]
  - Pulmonary embolism [Recovered/Resolved]
  - Hypertransaminasaemia [Recovered/Resolved]
  - Immune-mediated hepatitis [Recovered/Resolved]
  - Immune-mediated adrenal insufficiency [Recovered/Resolved]
  - Hypoxia [Recovered/Resolved]
  - Thrombocytopenia [Unknown]
  - Inappropriate antidiuretic hormone secretion [Unknown]
  - Pruritus [Unknown]
  - Hyponatraemia [Unknown]
  - Rash maculo-papular [Recovered/Resolved]
  - Hypotension [Recovering/Resolving]
  - Normocytic anaemia [Unknown]
  - Paraesthesia [Unknown]
  - Constipation [Recovering/Resolving]

NARRATIVE: CASE EVENT DATE: 20240410
